FAERS Safety Report 8590523-6 (Version None)
Quarter: 2012Q3

REPORT INFORMATION
  Report Type: 
  Country: None (occurrence: None)
  Receive Date: 20120813
  Receipt Date: 20120731
  Transmission Date: 20120928
  Serious: Yes (Hospitalization, Disabling)
  Sender: FDA-Public Use
  Company Number: US-COVIDIEN/TYCO HEALTHCARE/MALLINCKRODT-T201203042

PATIENT
  Age: 56 Year
  Sex: Female

DRUGS (3)
  1. METHADOSE [Suspect]
     Dosage: UNK
  2. FENTANYL CITRATE [Suspect]
     Dosage: UNK
  3. BENZODIAZEPINE DERIVATIVES [Suspect]
     Dosage: UNK

REACTIONS (4)
  - LEUKOENCEPHALOPATHY [None]
  - RENAL FAILURE ACUTE [None]
  - MULTIPLE DRUG OVERDOSE INTENTIONAL [None]
  - RHABDOMYOLYSIS [None]
